FAERS Safety Report 5299980-4 (Version None)
Quarter: 2007Q2

REPORT INFORMATION
  Report Type: 
  Country: None (occurrence: None)
  Receive Date: 20070410
  Receipt Date: 20070330
  Transmission Date: 20071010
  Serious: Yes (Hospitalization)
  Sender: FDA-Public Use
  Company Number: B0464932A

PATIENT

DRUGS (2)
  1. RELENZA [Suspect]
     Indication: INFLUENZA
     Dosage: 10 MG/TWICE PER DAY/INHALED
     Route: 055
     Dates: start: 20070308, end: 20070309
  2. AMOXICILLIN TRIHYDRATED [Concomitant]

REACTIONS (1)
  - STEVENS-JOHNSON SYNDROME [None]
